FAERS Safety Report 20588767 (Version 3)
Quarter: 2022Q2

REPORT INFORMATION
  Report Type: Report from Study
  Country: BR (occurrence: BR)
  Receive Date: 20220314
  Receipt Date: 20220530
  Transmission Date: 20220721
  Serious: Yes (Hospitalization)
  Sender: FDA-Public Use
  Company Number: BR-BIOGEN-2022BI01104089

PATIENT
  Age: 34 Year
  Sex: Female
  Weight: 68 kg

DRUGS (2)
  1. TYSABRI [Suspect]
     Active Substance: NATALIZUMAB
     Indication: Multiple sclerosis
     Route: 042
     Dates: start: 20211122
  2. FLUOXETINE [Concomitant]
     Active Substance: FLUOXETINE HYDROCHLORIDE
     Indication: Anxiety
     Route: 065

REACTIONS (3)
  - Multiple sclerosis relapse [Not Recovered/Not Resolved]
  - Neck pain [Not Recovered/Not Resolved]
  - Pain in extremity [Not Recovered/Not Resolved]

NARRATIVE: CASE EVENT DATE: 20220301
